FAERS Safety Report 15671781 (Version 1)
Quarter: 2018Q4

REPORT INFORMATION
  Report Type: Spontaneous
  Country: US (occurrence: US)
  Receive Date: 20181129
  Receipt Date: 20181129
  Transmission Date: 20190205
  Serious: Yes (Other)
  Sender: FDA-Public Use
  Company Number: US-TEVA-2018-US-979246

PATIENT
  Sex: Female

DRUGS (1)
  1. SPRINTEC [Suspect]
     Active Substance: ETHINYL ESTRADIOL\NORGESTIMATE
     Dosage: FORM STRENGTH: NORGESTIMATE 0.250 MG/ETHINYLESTRADIOL 0.035 MG
     Route: 065

REACTIONS (4)
  - Suicidal ideation [Unknown]
  - Emotional disorder [Unknown]
  - Weight increased [Unknown]
  - Eating disorder [Unknown]
